FAERS Safety Report 24579434 (Version 2)
Quarter: 2024Q4

REPORT INFORMATION
  Report Type: Spontaneous
  Country: JP (occurrence: JP)
  Receive Date: 20241105
  Receipt Date: 20241230
  Transmission Date: 20250115
  Serious: Yes (Hospitalization, Other)
  Sender: EXELIXIS
  Company Number: JP-TAKEDA-2024TJP015692

PATIENT
  Age: 77 Year
  Sex: Male

DRUGS (1)
  1. CABOMETYX [Suspect]
     Active Substance: CABOZANTINIB S-MALATE
     Indication: Renal cell carcinoma
     Dosage: 60 MILLIGRAM, QD
     Route: 048
     Dates: start: 202409, end: 20241001

REACTIONS (2)
  - Adrenal insufficiency [Recovered/Resolved]
  - Metastasis [Unknown]

NARRATIVE: CASE EVENT DATE: 20241001
